FAERS Safety Report 8599401-X (Version None)
Quarter: 2012Q3

REPORT INFORMATION
  Report Type: 
  Country: None (occurrence: None)
  Receive Date: 20120816
  Receipt Date: 20120814
  Transmission Date: 20120928
  Serious: Yes (Other)
  Sender: FDA-Public Use
  Company Number: PHEH2012US012945

PATIENT
  Sex: Female
  Weight: 108.84 kg

DRUGS (2)
  1. GILENYA [Suspect]
     Indication: MULTIPLE SCLEROSIS
     Dosage: 0.5 MG, QD
     Route: 048
     Dates: start: 20120625
  2. ANTIHYPERTENSIVES [Concomitant]

REACTIONS (6)
  - INSOMNIA [None]
  - OPTIC NEURITIS [None]
  - HEADACHE [None]
  - VISION BLURRED [None]
  - FOREIGN BODY SENSATION IN EYES [None]
  - OCULAR HYPERAEMIA [None]
